FAERS Safety Report 17139605 (Version 1)
Quarter: 2019Q4

REPORT INFORMATION
  Report Type: Spontaneous
  Country: MY (occurrence: MY)
  Receive Date: 20191211
  Receipt Date: 20191211
  Transmission Date: 20200122
  Serious: Yes (Other)
  Sender: FDA-Public Use
  Company Number: MY-TORRENT-00000196

PATIENT
  Age: 9 Year
  Sex: Male

DRUGS (1)
  1. EPIMATE [Suspect]
     Active Substance: TOPIRAMATE
     Indication: SEIZURE

REACTIONS (3)
  - Dysphagia [Recovered/Resolved]
  - Oral mucosal blistering [Recovered/Resolved]
  - Lip oedema [Recovered/Resolved]
